FAERS Safety Report 16522379 (Version 4)
Quarter: 2019Q3

REPORT INFORMATION
  Report Type: Spontaneous
  Country: US (occurrence: US)
  Receive Date: 20190703
  Receipt Date: 20190909
  Transmission Date: 20191004
  Serious: No
  Sender: FDA-Public Use
  Company Number: US-PFIZER INC-2019281261

PATIENT
  Age: 67 Year
  Sex: Female
  Weight: 73 kg

DRUGS (3)
  1. TRINTELLIX [Suspect]
     Active Substance: VORTIOXETINE HYDROBROMIDE
     Indication: DEPRESSION
     Dosage: 5 MG, ONCE A DAY (IN THE MORNING)
     Dates: start: 2016
  2. PRISTIQ EXTENDED-RELEASE [Suspect]
     Active Substance: DESVENLAFAXINE SUCCINATE
     Indication: DEPRESSION
     Dosage: 50 MG, ONCE A DAY
     Dates: start: 201903
  3. PRISTIQ EXTENDED-RELEASE [Suspect]
     Active Substance: DESVENLAFAXINE SUCCINATE
     Dosage: 100 MG, 1X/DAY [MORNING DAILY]
     Route: 048

REACTIONS (1)
  - Drug ineffective [Unknown]
